FAERS Safety Report 22254690 (Version 1)
Quarter: 2023Q2

REPORT INFORMATION
  Report Type: Spontaneous
  Country: GB (occurrence: None)
  Receive Date: 20230426
  Receipt Date: 20230426
  Transmission Date: 20230722
  Serious: Yes (Other)
  Sender: FDA-Public Use
  Company Number: GB-MHRA-MED-202304141507446010-HVMLZ

PATIENT
  Sex: Female

DRUGS (17)
  1. PIPERACILLIN AND TAZOBACTAM [Suspect]
     Active Substance: PIPERACILLIN SODIUM\TAZOBACTAM SODIUM
     Indication: Infective exacerbation of bronchiectasis
     Dosage: 13.5G INFUSED OVER 24HOURS; ; ()
     Dates: end: 20230303
  2. AMITRIPTYLINE [Concomitant]
     Active Substance: AMITRIPTYLINE
  3. AZITHROMYCIN [Concomitant]
     Active Substance: AZITHROMYCIN
  4. BACLOFEN [Concomitant]
     Active Substance: BACLOFEN
  5. CARBOCYSTEINE [Concomitant]
     Active Substance: CARBOCYSTEINE
  6. DESOGESTREL [Concomitant]
     Active Substance: DESOGESTREL
  7. BECLOMETHASONE\FORMOTEROL [Concomitant]
     Active Substance: BECLOMETHASONE\FORMOTEROL
  8. LORATADINE [Concomitant]
     Active Substance: LORATADINE
  9. MOMETASONE [Concomitant]
     Active Substance: MOMETASONE
  10. MORPHINE [Concomitant]
     Active Substance: MORPHINE
  11. NAPROXEN [Concomitant]
     Active Substance: NAPROXEN
  12. OMEPRAZOLE [Concomitant]
     Active Substance: OMEPRAZOLE
  13. ACETAMINOPHEN [Concomitant]
     Active Substance: ACETAMINOPHEN
  14. PREGABALIN [Concomitant]
     Active Substance: PREGABALIN
  15. SPIRIVA [Concomitant]
     Active Substance: TIOTROPIUM BROMIDE MONOHYDRATE
  16. TERBUTALINE [Concomitant]
     Active Substance: TERBUTALINE
  17. TRAMADOL [Concomitant]
     Active Substance: TRAMADOL

REACTIONS (1)
  - Deafness [Not Recovered/Not Resolved]

NARRATIVE: CASE EVENT DATE: 20230301
